FAERS Safety Report 24919128 (Version 1)
Quarter: 2025Q1

REPORT INFORMATION
  Report Type: Spontaneous
  Country: FR (occurrence: FR)
  Receive Date: 20250204
  Receipt Date: 20250204
  Transmission Date: 20250409
  Serious: Yes (Hospitalization, Other)
  Sender: AUROBINDO
  Company Number: FR-AFSSAPS-BS2025000041

PATIENT
  Age: 35 Year
  Sex: Male

DRUGS (3)
  1. ACETAMINOPHEN [Suspect]
     Active Substance: ACETAMINOPHEN
     Indication: Lung disorder
     Route: 048
     Dates: start: 20100817
  2. IBUPROFEN [Suspect]
     Active Substance: IBUPROFEN
     Indication: Lung disorder
     Route: 048
     Dates: start: 20100817
  3. AUGMENTIN [Suspect]
     Active Substance: AMOXICILLIN\CLAVULANATE POTASSIUM
     Indication: Lung disorder
     Route: 048
     Dates: start: 20100817

REACTIONS (2)
  - Hepatitis [Recovered/Resolved]
  - Jaundice [Recovered/Resolved]

NARRATIVE: CASE EVENT DATE: 20100901
